FAERS Safety Report 9032482 (Version 1)
Quarter: 2013Q1

REPORT INFORMATION
  Report Type: Spontaneous
  Country: PT (occurrence: None)
  Receive Date: 20130108
  Receipt Date: 20130108
  Transmission Date: 20140127
  Serious: Yes (Other)
  Sender: FDA-Public Use
  Company Number: ABR_00781_2013

PATIENT
  Sex: Female

DRUGS (2)
  1. ERYTHROMYCIN ETHYLSUCCINATE [Suspect]
     Indication: TOOTH INFECTION
     Route: 048
     Dates: start: 201108
  2. PARACETAMOL [Concomitant]

REACTIONS (2)
  - Erythema [None]
  - Face oedema [None]
